FAERS Safety Report 21303185 (Version 1)
Quarter: 2022Q3

REPORT INFORMATION
  Report Type: Spontaneous
  Country: US (occurrence: US)
  Receive Date: 20220907
  Receipt Date: 20220907
  Transmission Date: 20221027
  Serious: No
  Sender: FDA-Public Use
  Company Number: US-HARMONY BIOSCIENCES-2022HMY01190

PATIENT
  Age: 70 Year
  Sex: Male

DRUGS (9)
  1. WAKIX [Suspect]
     Active Substance: PITOLISANT HYDROCHLORIDE
     Indication: Narcolepsy
     Dosage: 4.45 MG
  2. WAKIX [Suspect]
     Active Substance: PITOLISANT HYDROCHLORIDE
     Indication: Cataplexy
     Dosage: 35.6 MG
  3. VENLAFAXINE HYDROCHLORIDE [Concomitant]
     Active Substance: VENLAFAXINE HYDROCHLORIDE
     Dosage: 75 MG
  4. VENLAFAXINE HYDROCHLORIDE [Concomitant]
     Active Substance: VENLAFAXINE HYDROCHLORIDE
     Dosage: 300 MG
  5. TAMSULOSIN [Concomitant]
     Active Substance: TAMSULOSIN
  6. MODAFINIL [Concomitant]
     Active Substance: MODAFINIL
  7. MELATONIN [Concomitant]
     Active Substance: MELATONIN
  8. LOVASTATIN [Concomitant]
     Active Substance: LOVASTATIN
  9. MELOXICAM [Concomitant]
     Active Substance: MELOXICAM
     Dosage: UNK, AS NEEDED

REACTIONS (1)
  - Drug ineffective [Recovered/Resolved]
